FAERS Safety Report 11363004 (Version 1)
Quarter: 2015Q3

REPORT INFORMATION
  Report Type: Spontaneous
  Country: FR (occurrence: None)
  Receive Date: 20150807
  Receipt Date: 20150807
  Transmission Date: 20151125
  Serious: Yes (Congenital Anomaly)
  Sender: FDA-Public Use
  Company Number: CO-PL-FR-2015-162

PATIENT
  Sex: Female

DRUGS (5)
  1. CORTANCYL (UNKNOWN) (PREDNISONE) [Suspect]
     Active Substance: PREDNISONE
     Indication: MATERNAL EXPOSURE DURING PREGNANCY
     Route: 064
     Dates: start: 201503, end: 201503
  2. PLAQUENIL [Suspect]
     Active Substance: HYDROXYCHLOROQUINE SULFATE
     Indication: MATERNAL EXPOSURE DURING PREGNANCY
     Route: 064
  3. SOLU-MEDROL [Suspect]
     Active Substance: METHYLPREDNISOLONE SODIUM SUCCINATE
     Indication: MATERNAL EXPOSURE DURING PREGNANCY
     Dosage: 1 MG/KG , TRANSPLACENTAL
     Route: 064
     Dates: start: 20141005, end: 20141005
  4. ZELITREX (UNKNOWN) (VALACICLOVIR HYDROCHLORIDE) [Suspect]
     Active Substance: VALACYCLOVIR HYDROCHLORIDE
     Indication: MATERNAL EXPOSURE DURING PREGNANCY
     Route: 064
     Dates: start: 20141116
  5. IMUREL (UNKNOWN) (AZATHIOPRINE) [Suspect]
     Active Substance: AZATHIOPRINE SODIUM
     Indication: MATERNAL EXPOSURE DURING PREGNANCY
     Route: 064

REACTIONS (4)
  - Maternal drugs affecting foetus [None]
  - Aplasia cutis congenita [None]
  - Trisomy 21 [None]
  - Premature baby [None]

NARRATIVE: CASE EVENT DATE: 20150316
